FAERS Safety Report 21139337 (Version 1)
Quarter: 2022Q3

REPORT INFORMATION
  Report Type: Report from Study
  Country: CA (occurrence: CA)
  Receive Date: 20220727
  Receipt Date: 20220727
  Transmission Date: 20221027
  Serious: Yes (Other)
  Sender: FDA-Public Use
  Company Number: CA-NOVARTISPH-NVSC2022CA167153

PATIENT
  Sex: Female
  Weight: 56.8 kg

DRUGS (2)
  1. HYRIMOZ [Suspect]
     Active Substance: ADALIMUMAB-ADAZ
     Indication: Crohn^s disease
     Dosage: 40 MG, BIW
     Route: 058
     Dates: start: 20210820
  2. HYRIMOZ [Suspect]
     Active Substance: ADALIMUMAB-ADAZ
     Dosage: 40 MG, BIW (TAKES INJECTION EVERY OTHER FRIDAY)
     Route: 058
     Dates: start: 20220715

REACTIONS (2)
  - Uveitis [Unknown]
  - Sleep disorder [Unknown]
